FAERS Safety Report 25300614 (Version 1)
Quarter: 2025Q2

REPORT INFORMATION
  Report Type: Spontaneous
  Country: FR (occurrence: FR)
  Receive Date: 20250512
  Receipt Date: 20250512
  Transmission Date: 20250717
  Serious: Yes (Other)
  Sender: PFIZER
  Company Number: None

PATIENT
  Age: 51 Year
  Sex: Female

DRUGS (1)
  1. TIGECYCLINE [Suspect]
     Active Substance: TIGECYCLINE
     Indication: Mycobacterium fortuitum infection
     Dosage: 100 MG, 1X/DAY
     Route: 048
     Dates: start: 20250123, end: 20250222

REACTIONS (3)
  - Hepatic cytolysis [Recovered/Resolved]
  - Gastrointestinal disorder [Recovered/Resolved]
  - Off label use [Unknown]

NARRATIVE: CASE EVENT DATE: 20250123
